FAERS Safety Report 19164165 (Version 1)
Quarter: 2021Q2

REPORT INFORMATION
  Report Type: Spontaneous
  Country: CN (occurrence: CN)
  Receive Date: 20210421
  Receipt Date: 20210421
  Transmission Date: 20210717
  Serious: Yes (Other)
  Sender: FDA-Public Use
  Company Number: CN-PFIZER INC-2021383307

PATIENT
  Age: 45 Year
  Sex: Female

DRUGS (3)
  1. SODIUM CHLORIDE. [Concomitant]
     Active Substance: SODIUM CHLORIDE
     Indication: CERVIX CARCINOMA
     Dosage: 500 ML, 1X/DAY
     Route: 041
     Dates: start: 20210327, end: 20210327
  2. ANZATAX (PACLITAXEL) [Suspect]
     Active Substance: PACLITAXEL
     Indication: CERVIX CARCINOMA
     Dosage: 270 MG, 1X/DAY
     Route: 041
     Dates: start: 20210327, end: 20210327
  3. SODIUM CHLORIDE. [Concomitant]
     Active Substance: SODIUM CHLORIDE
     Indication: CERVIX CARCINOMA
     Dosage: 100 ML, 1X/DAY
     Route: 041
     Dates: start: 20210327, end: 20210327

REACTIONS (6)
  - Chest discomfort [Recovering/Resolving]
  - Tachypnoea [Recovering/Resolving]
  - Drug hypersensitivity [Recovering/Resolving]
  - Infusion related reaction [Recovering/Resolving]
  - Off label use [Unknown]
  - Discomfort [Recovering/Resolving]

NARRATIVE: CASE EVENT DATE: 20210327
